FAERS Safety Report 17917884 (Version 5)
Quarter: 2020Q4

REPORT INFORMATION
  Report Type: Spontaneous
  Country: US (occurrence: US)
  Receive Date: 20200619
  Receipt Date: 20201028
  Transmission Date: 20210113
  Serious: Yes (Hospitalization, Other)
  Sender: FDA-Public Use
  Company Number: US-AMGEN-USASP2020096165

PATIENT
  Age: 42 Year
  Sex: Female

DRUGS (21)
  1. VITAMIN C PLUS [ASCORBIC ACID] [Concomitant]
     Active Substance: ASCORBIC ACID
     Dosage: UNK
  2. MULTI-VIT [Concomitant]
     Active Substance: VITAMINS
     Dosage: UNK
  3. MAGNESIUM [Concomitant]
     Active Substance: MAGNESIUM
     Dosage: UNK
  4. PREDNISONE. [Concomitant]
     Active Substance: PREDNISONE
     Dosage: UNK
  5. ALENDRONATE [Concomitant]
     Active Substance: ALENDRONATE SODIUM
     Dosage: UNK
  6. BASAGLAR [Concomitant]
     Active Substance: INSULIN GLARGINE
     Dosage: UNK
  7. LYRICA [Concomitant]
     Active Substance: PREGABALIN
     Dosage: UNK
  8. OTEZLA [Suspect]
     Active Substance: APREMILAST
     Dosage: 30 MILLIGRAM, BID
     Route: 048
  9. OMEPRAZOLE. [Concomitant]
     Active Substance: OMEPRAZOLE
     Dosage: UNK
  10. LIOTHYRONINE [Concomitant]
     Active Substance: LIOTHYRONINE
     Dosage: UNK
  11. AMITRIPTYLINE HCL [Concomitant]
     Active Substance: AMITRIPTYLINE
     Dosage: UNK
  12. CALCIUM [Concomitant]
     Active Substance: CALCIUM
     Dosage: UNK
  13. TACROLIMUS. [Concomitant]
     Active Substance: TACROLIMUS
     Dosage: UNK
  14. WELLBUTRIN [Concomitant]
     Active Substance: BUPROPION HYDROCHLORIDE
     Dosage: UNK
  15. DULOXETINE [DULOXETINE HYDROCHLORIDE] [Concomitant]
     Active Substance: DULOXETINE HYDROCHLORIDE
     Dosage: UNK
  16. SULFADIAZINE. [Concomitant]
     Active Substance: SULFADIAZINE
     Dosage: UNK
  17. MYCOPHENOLATE [Concomitant]
     Active Substance: MYCOPHENOLIC ACID
     Dosage: UNK
  18. OTEZLA [Suspect]
     Active Substance: APREMILAST
     Indication: PSORIATIC ARTHROPATHY
     Dosage: 30 MILLIGRAM, QD
     Route: 048
     Dates: start: 201704
  19. ASPRIN [Concomitant]
     Active Substance: ASPIRIN
     Dosage: UNK
  20. NOVOLOG [Concomitant]
     Active Substance: INSULIN ASPART
     Dosage: UNK
  21. SILVER SULFADIAZINE. [Concomitant]
     Active Substance: SILVER SULFADIAZINE
     Dosage: UNK

REACTIONS (8)
  - Pancreas transplant rejection [Unknown]
  - Product use complaint [Unknown]
  - Diabetic ketoacidosis [Recovering/Resolving]
  - Psoriasis [Not Recovered/Not Resolved]
  - Blood glucose increased [Unknown]
  - Dermatitis contact [Unknown]
  - Product dose omission issue [Unknown]
  - Off label use [Unknown]

NARRATIVE: CASE EVENT DATE: 2020
